FAERS Safety Report 18264678 (Version 18)
Quarter: 2025Q3

REPORT INFORMATION
  Report Type: Spontaneous
  Country: US (occurrence: US)
  Receive Date: 20200914
  Receipt Date: 20250918
  Transmission Date: 20251020
  Serious: Yes (Other)
  Sender: PFIZER
  Company Number: US-PFIZER INC-2020354439

PATIENT
  Age: 80 Year
  Sex: Female
  Weight: 62.14 kg

DRUGS (3)
  1. XELJANZ [Suspect]
     Active Substance: TOFACITINIB CITRATE
     Indication: Rheumatoid arthritis
     Dosage: 5 MG, 2X/DAY
     Route: 048
     Dates: start: 20180508
  2. XELJANZ [Suspect]
     Active Substance: TOFACITINIB CITRATE
     Dosage: 5 MG, 1X/DAY
     Route: 048
  3. XELJANZ [Suspect]
     Active Substance: TOFACITINIB CITRATE
     Dosage: 5 MG, DAILY

REACTIONS (10)
  - Lymphocytic leukaemia [Unknown]
  - Latent tuberculosis [Recovered/Resolved]
  - Gait inability [Unknown]
  - Illness [Unknown]
  - Body height decreased [Unknown]
  - Malaise [Unknown]
  - Memory impairment [Unknown]
  - Viral infection [Unknown]
  - Product prescribing error [Unknown]
  - Intentional product misuse [Unknown]

NARRATIVE: CASE EVENT DATE: 20200101
